FAERS Safety Report 18154413 (Version 2)
Quarter: 2020Q3

REPORT INFORMATION
  Report Type: Spontaneous
  Country: US (occurrence: US)
  Receive Date: 20200817
  Receipt Date: 20200817
  Transmission Date: 20201103
  Serious: Yes (Hospitalization)
  Sender: FDA-Public Use
  Company Number: US-JNJFOC-20200819955

PATIENT
  Sex: Female

DRUGS (1)
  1. PARACETAMOL [Suspect]
     Active Substance: ACETAMINOPHEN
     Indication: PAIN
     Route: 065

REACTIONS (18)
  - Accidental overdose [Unknown]
  - Platelet count decreased [Unknown]
  - Foetal death [Unknown]
  - Pre-eclampsia [Unknown]
  - Ammonia increased [Unknown]
  - Ascites [Unknown]
  - Renal failure [Unknown]
  - Toxicity to various agents [Unknown]
  - Encephalopathy [Unknown]
  - Hepatic steatosis [Unknown]
  - Haemolysis [Unknown]
  - Overdose [Unknown]
  - Acute hepatic failure [Unknown]
  - Exposure during pregnancy [Unknown]
  - Hypoglycaemia [Unknown]
  - Suicide attempt [Unknown]
  - Eclampsia [Unknown]
  - Leukocytosis [Unknown]
